FAERS Safety Report 18122016 (Version 1)
Quarter: 2020Q3

REPORT INFORMATION
  Report Type: Other
  Country: GB (occurrence: GB)
  Receive Date: 20200807
  Receipt Date: 20200807
  Transmission Date: 20201103
  Serious: Yes (Other)
  Sender: FDA-Public Use
  Company Number: GB-ROCHE-2651961

PATIENT

DRUGS (12)
  1. RITUXIMAB. [Concomitant]
     Active Substance: RITUXIMAB
     Indication: PEMPHIGOID
     Route: 065
  2. HYDROXYCHLOROQUINE [Concomitant]
     Active Substance: HYDROXYCHLOROQUINE
     Indication: PEMPHIGOID
  3. PREDNISOLONE. [Concomitant]
     Active Substance: PREDNISOLONE
     Indication: PEMPHIGOID
  4. BETAMETHASONE SODIUM PHOSPHATE [Concomitant]
     Active Substance: BETAMETHASONE SODIUM PHOSPHATE
     Indication: PEMPHIGOID
     Dosage: 0.5 MG DISSOLVED IN 10 ML WATER (MOUTHWASH)
  5. AZATHIOPRINE. [Concomitant]
     Active Substance: AZATHIOPRINE
     Indication: PEMPHIGOID
  6. FLUOCINONIDE. [Concomitant]
     Active Substance: FLUOCINONIDE
     Indication: PEMPHIGOID
     Dosage: SMALL AMOUNT APPLIED TO LESIONS
  7. DOXYCYCLINE. [Concomitant]
     Active Substance: DOXYCYCLINE
     Indication: PEMPHIGOID
  8. FLUTICASONE PROPRIONATE [Concomitant]
     Active Substance: FLUTICASONE PROPIONATE
     Indication: PEMPHIGOID
     Dosage: 50 UG PER METERED DOSE
  9. METHOTREXATE. [Concomitant]
     Active Substance: METHOTREXATE
     Indication: PEMPHIGOID
  10. BECLOMETASONE DIPROPIONATE [Concomitant]
     Active Substance: BECLOMETHASONE DIPROPIONATE
     Indication: PEMPHIGOID
     Dosage: 50 UG PER ACTUATION
  11. MYCOPHENOLATE MOFETIL. [Suspect]
     Active Substance: MYCOPHENOLATE MOFETIL
     Indication: PEMPHIGOID
     Route: 065
  12. DAPSONE. [Concomitant]
     Active Substance: DAPSONE
     Indication: PEMPHIGOID

REACTIONS (5)
  - Anaemia [Unknown]
  - Malaise [Unknown]
  - Gastrointestinal disorder [Unknown]
  - Renal impairment [Unknown]
  - Rash [Unknown]
